FAERS Safety Report 18695159 (Version 1)
Quarter: 2021Q1

REPORT INFORMATION
  Report Type: Spontaneous
  Country: FI (occurrence: FI)
  Receive Date: 20210104
  Receipt Date: 20210104
  Transmission Date: 20210419
  Serious: Yes (Death)
  Sender: FDA-Public Use
  Company Number: FI-PFIZER INC-2021001274

PATIENT
  Age: 59 Year
  Sex: Female

DRUGS (12)
  1. SPIRONOLACTONE ORION [Concomitant]
     Active Substance: SPIRONOLACTONE
     Indication: OEDEMA
     Dosage: 2.5 MG, DAILY
     Route: 048
     Dates: start: 20200914, end: 20200915
  2. SOLU?MEDROL [Concomitant]
     Active Substance: METHYLPREDNISOLONE SODIUM SUCCINATE
     Indication: PNEUMOCYSTIS JIROVECII PNEUMONIA
     Dosage: UNK
     Route: 042
     Dates: start: 20200911, end: 20200923
  3. FUROSEMIDE FRESENIUS KABI [Concomitant]
     Indication: OEDEMA
     Dosage: 30 MG, DAILY
     Route: 042
     Dates: start: 20200910, end: 20200923
  4. MERONEM [Concomitant]
     Active Substance: MEROPENEM
     Indication: PNEUMONIA
     Dosage: 3 G, DAILY
     Route: 042
     Dates: start: 20200910, end: 20200911
  5. KALEORID [Concomitant]
     Active Substance: POTASSIUM CHLORIDE
     Indication: HYPOKALAEMIA
     Dosage: 4 G, DAILY
     Route: 048
     Dates: start: 20200903, end: 20200905
  6. ONDANSETRON FRESENIUS KABI [Concomitant]
     Indication: NAUSEA
     Dosage: UNK
     Route: 042
     Dates: start: 20200914, end: 20200915
  7. ROXITHROMYCIN ORIFARM [Concomitant]
     Active Substance: ROXITHROMYCIN
     Indication: PNEUMONIA
     Dosage: 300 MG, DAILY
     Route: 048
     Dates: start: 20200908, end: 20200911
  8. FOLIC ACID VITABALANS [Concomitant]
     Dosage: 5 MG, WEEKLY
     Route: 048
     Dates: start: 201709
  9. ZAROXOLYN [Concomitant]
     Active Substance: METOLAZONE
     Indication: OEDEMA
     Dosage: 2.5 MG, DAILY
     Route: 048
     Dates: start: 20200915, end: 20200915
  10. TREXAN [METHOTREXATE SODIUM] [Suspect]
     Active Substance: METHOTREXATE SODIUM
     Indication: RHEUMATOID ARTHRITIS
     Dosage: 10 MG, WEEKLY
     Route: 048
     Dates: start: 201709
  11. COTRIM [Suspect]
     Active Substance: SULFAMETHOXAZOLE\TRIMETHOPRIM
     Indication: PNEUMOCYSTIS JIROVECII PNEUMONIA
     Dosage: UNK
     Route: 042
     Dates: start: 20200909, end: 20200914
  12. COTRIM FORTE [Suspect]
     Active Substance: SULFAMETHOXAZOLE\TRIMETHOPRIM
     Indication: PNEUMOCYSTIS JIROVECII PNEUMONIA
     Dosage: UNK
     Route: 048
     Dates: start: 20200914, end: 20200915

REACTIONS (10)
  - Pneumocystis jirovecii pneumonia [Fatal]
  - Anaemia [Fatal]
  - Fatigue [Fatal]
  - Respiratory failure [Fatal]
  - Thrombocytopenia [Fatal]
  - Enterococcal sepsis [Fatal]
  - Leukopenia [Fatal]
  - Candida sepsis [Fatal]
  - Myelosuppression [Fatal]
  - Anuria [Fatal]

NARRATIVE: CASE EVENT DATE: 20200824
